FAERS Safety Report 12202109 (Version 5)
Quarter: 2016Q3

REPORT INFORMATION
  Report Type: Spontaneous
  Country: JP (occurrence: JP)
  Receive Date: 20160322
  Receipt Date: 20160705
  Transmission Date: 20161109
  Serious: Yes (Other)
  Sender: FDA-Public Use
  Company Number: JP-SA-2016SA053620

PATIENT
  Age: 32 Year
  Sex: Male
  Weight: 81 kg

DRUGS (10)
  1. GRANULOCYTE COLONY STIMULATING FACTOR [Concomitant]
     Active Substance: GRANULOCYTE COLONY-STIMULATING FACTOR NOS
     Indication: PROPHYLAXIS
     Dosage: FREQUENCY: ONE EVERY 3 WEEKS?TWO CYCLES EVERY 3 WEEKS
     Route: 065
  2. BLEOMYCIN [Suspect]
     Active Substance: BLEOMYCIN SULFATE
     Indication: METASTATIC CHORIOCARCINOMA
     Dosage: FREQUENCY: 1 EVERY 3 WEEKS?TWO CYCLES EVERY 3 WEEKS
     Route: 065
  3. CISPLATIN. [Suspect]
     Active Substance: CISPLATIN
     Indication: METASTATIC CHORIOCARCINOMA
     Dosage: DOSE:41.1 MG/BODY (20 MG/M2)?FREQUENCY: 1 EVERY 3 WEEKS
     Route: 065
  4. IFOSFAMIDE. [Concomitant]
     Active Substance: IFOSFAMIDE
     Indication: METASTATIC CHORIOCARCINOMA
     Dosage: DOSE:4110 MG/BODY (2000 MG/M2)?2 G/M2 ON DAYS 10, 12, AND 14
     Route: 065
  5. MESNA. [Concomitant]
     Active Substance: MESNA
     Indication: PROPHYLAXIS
     Dosage: FREQUENCY: 1 EVERY 3 WEEKS
     Route: 065
  6. ELPLAT [Suspect]
     Active Substance: OXALIPLATIN
     Indication: CHORIOCARCINOMA
     Dosage: FREQUENCY: 1 EVERY 3 WEEKS?TWO CYCLES EVERY 3 WEEKS?MODIFIED BEP REGIMEN (DAY 10)
     Route: 041
  7. BLEOMYCIN [Suspect]
     Active Substance: BLEOMYCIN SULFATE
     Indication: METASTATIC CHORIOCARCINOMA
     Dosage: FORM: INFUSION
     Route: 042
  8. CISPLATIN. [Suspect]
     Active Substance: CISPLATIN
     Indication: METASTATIC CHORIOCARCINOMA
     Dosage: DOSE:41.1 MG/BODY (20 MG/M2)?FREQUENCY: 1 EVERY 3 WEEKS?TWO CYCLES EVERY 3 WEEKS
     Route: 065
  9. ETOPOSIDE. [Concomitant]
     Active Substance: ETOPOSIDE
     Indication: CHORIOCARCINOMA
     Dosage: DOSE:205.5 MG/BODY (100 MG/M2)?FREQUENCY: ONE EVERY 3 WEEKS?TWO CYCLES EVERY 3 WEEKS
     Route: 065
  10. PACLITAXEL. [Concomitant]
     Active Substance: PACLITAXEL
     Indication: METASTATIC CHORIOCARCINOMA
     Route: 065

REACTIONS (6)
  - Decreased appetite [Unknown]
  - Hyperuricaemia [Recovering/Resolving]
  - Malaise [Unknown]
  - Product use issue [Unknown]
  - Tumour lysis syndrome [Recovering/Resolving]
  - Acute kidney injury [Recovering/Resolving]
